FAERS Safety Report 8157200-7 (Version None)
Quarter: 2012Q1

REPORT INFORMATION
  Report Type: 
  Country: None (occurrence: None)
  Receive Date: 20120222
  Receipt Date: 20120208
  Transmission Date: 20120608
  Serious: Yes (Hospitalization)
  Sender: FDA-Public Use
  Company Number: US-ROCHE-1039527

PATIENT
  Age: 67 Year
  Sex: Male
  Weight: 94.886 kg

DRUGS (3)
  1. XELODA [Suspect]
     Indication: BILE DUCT CANCER
     Dosage: 2500MG AND 1950MG
     Route: 048
     Dates: start: 20111229, end: 20120103
  2. AVASTIN [Suspect]
     Indication: BILE DUCT CANCER
     Route: 042
     Dates: start: 20111229, end: 20120119
  3. GEMCITABINE HYDROCHLORIDE [Suspect]
     Indication: BILE DUCT CANCER
     Route: 042
     Dates: start: 20111229, end: 20120126

REACTIONS (9)
  - DIARRHOEA [None]
  - ANAEMIA [None]
  - THROMBOCYTOPENIA [None]
  - HYPERBILIRUBINAEMIA [None]
  - HYPOCALCAEMIA [None]
  - PYREXIA [None]
  - HYPERGLYCAEMIA [None]
  - HYPONATRAEMIA [None]
  - COLITIS [None]
